FAERS Safety Report 16914098 (Version 2)
Quarter: 2019Q4

REPORT INFORMATION
  Report Type: Spontaneous
  Country: US (occurrence: US)
  Receive Date: 20191014
  Receipt Date: 20191018
  Transmission Date: 20200122
  Serious: No
  Sender: FDA-Public Use
  Company Number: US-PFIZER INC-2019440315

PATIENT
  Age: 64 Year
  Sex: Female
  Weight: 52.16 kg

DRUGS (1)
  1. IBRANCE [Suspect]
     Active Substance: PALBOCICLIB
     Indication: BREAST CANCER METASTATIC
     Dosage: 100 MG, CYCLIC, (21 DAYS OFF 7 DAYS)
     Dates: start: 201607

REACTIONS (3)
  - Fatigue [Unknown]
  - Neoplasm progression [Unknown]
  - Decreased appetite [Unknown]
